FAERS Safety Report 22163715 (Version 1)
Quarter: 2023Q2

REPORT INFORMATION
  Report Type: Spontaneous
  Country: US (occurrence: US)
  Receive Date: 20230401
  Receipt Date: 20230401
  Transmission Date: 20230722
  Serious: No
  Sender: FDA-Public Use
  Company Number: US-THEA-2022001983

PATIENT
  Sex: Male

DRUGS (2)
  1. COSOPT PF [Suspect]
     Active Substance: DORZOLAMIDE HYDROCHLORIDE\TIMOLOL MALEATE
     Indication: Glaucoma
     Route: 047
  2. ZIOPTAN [Concomitant]
     Active Substance: TAFLUPROST
     Indication: Product used for unknown indication
     Route: 047

REACTIONS (2)
  - Eye irritation [Unknown]
  - Product residue present [Unknown]
